FAERS Safety Report 9709262 (Version 1)
Quarter: 2013Q4

REPORT INFORMATION
  Report Type: Spontaneous
  Country: US (occurrence: US)
  Receive Date: 20131125
  Receipt Date: 20131125
  Transmission Date: 20140711
  Serious: Yes (Hospitalization, Other)
  Sender: FDA-Public Use
  Company Number: US-GILEAD-2013-0088054

PATIENT
  Age: 59 Year
  Sex: Female

DRUGS (10)
  1. RANEXA [Suspect]
     Indication: ANGINA PECTORIS
     Dosage: 500 MG, BID
     Route: 048
     Dates: start: 201205
  2. COREG [Concomitant]
     Indication: CARDIAC DISORDER
     Dosage: UNK
  3. ISOSORBIDE DINITRATE [Concomitant]
     Indication: CARDIAC DISORDER
     Dosage: UNK
  4. NITROSTAT [Concomitant]
     Indication: CARDIAC DISORDER
     Dosage: UNK
  5. BABY ASPIRIN [Concomitant]
     Indication: CARDIAC DISORDER
     Dosage: UNK
  6. K-DUR [Concomitant]
     Indication: PRODUCT USED FOR UNKNOWN INDICATION
     Dosage: UNK
  7. LASIX                              /00032601/ [Concomitant]
     Indication: PRODUCT USED FOR UNKNOWN INDICATION
     Dosage: UNK
  8. LEVOTHYROXINE [Concomitant]
     Indication: HYPOTHYROIDISM
     Dosage: UNK
  9. XANAX [Concomitant]
     Indication: ANXIETY
     Dosage: UNK
  10. VITAMIN D3 [Concomitant]
     Indication: PRODUCT USED FOR UNKNOWN INDICATION
     Dosage: UNK

REACTIONS (3)
  - Anal cancer [Recovered/Resolved]
  - Anal cancer [Not Recovered/Not Resolved]
  - Anal cancer [Not Recovered/Not Resolved]
